FAERS Safety Report 21838136 (Version 5)
Quarter: 2023Q1

REPORT INFORMATION
  Report Type: Report from Study
  Country: JP (occurrence: None)
  Receive Date: 20230109
  Receipt Date: 20230326
  Transmission Date: 20230418
  Serious: Yes (Hospitalization)
  Sender: FDA-Public Use
  Company Number: JP-ROCHE-3256709

PATIENT
  Age: 82 Year
  Sex: Female
  Weight: 43.9 kg

DRUGS (24)
  1. PLACEBO [Suspect]
     Active Substance: UNSPECIFIED INGREDIENT
     Indication: Small cell lung cancer extensive stage
     Dosage: ON 07/DEC/2022, RECEIVED MOST RECENT DOSE OF BLINDED TIRAGOLUMAB PRIOR TO AE AND SAE
     Route: 042
     Dates: start: 20201224
  2. ATEZOLIZUMAB [Suspect]
     Active Substance: ATEZOLIZUMAB
     Indication: Small cell lung cancer extensive stage
     Dosage: ON 07/DEC/2022, RECEIVED MOST RECENT DOSE OF ATEZOLIZUMAB 1200 MG PRIOR TO AE AND SAE
     Route: 041
     Dates: start: 20201224
  3. CARBOPLATIN [Suspect]
     Active Substance: CARBOPLATIN
     Indication: Small cell lung cancer extensive stage
     Dosage: ON 12/MAR/2021, RECEIVED MOST RECENT DOSE OF CARBOPLATIN 286.84 MG PRIOR TO AE AND SAE
     Route: 042
     Dates: start: 20201224
  4. ETOPOSIDE [Suspect]
     Active Substance: ETOPOSIDE
     Indication: Small cell lung cancer extensive stage
     Dosage: ON 14/MAR/2021, RECEIVED MOST RECENT DOSE OF ETOPOSIDE 100.95 MG PRIOR TO AE AND SAE.?FREQUENCY: ON
     Route: 042
     Dates: start: 20201224
  5. ETIZOLAM [Concomitant]
     Active Substance: ETIZOLAM
     Indication: Insomnia
  6. ZETIA [Concomitant]
     Active Substance: EZETIMIBE
     Indication: Type 2 diabetes mellitus
  7. AMLODIPINE BESYLATE\IRBESARTAN [Concomitant]
     Active Substance: AMLODIPINE BESYLATE\IRBESARTAN
     Indication: Hypertension
  8. RABEPRAZOLE SODIUM [Concomitant]
     Active Substance: RABEPRAZOLE SODIUM
     Indication: Gastritis
  9. POLAPREZINC [Concomitant]
     Active Substance: POLAPREZINC
     Indication: Gastritis
  10. LOXOPROFEN SODIUM [Concomitant]
     Active Substance: LOXOPROFEN SODIUM
     Indication: Arthralgia
  11. ANAGLIPTIN [Concomitant]
     Active Substance: ANAGLIPTIN
     Dates: start: 20210325
  12. GLYCOSAMINOGLYCANS [Concomitant]
     Active Substance: GLYCOSAMINOGLYCANS
     Dates: start: 20210623
  13. FEXOFENADINE HYDROCHLORIDE [Concomitant]
     Active Substance: FEXOFENADINE HYDROCHLORIDE
     Dates: start: 20210622
  14. BETAMETHASONE DIPROPIONATE [Concomitant]
     Active Substance: BETAMETHASONE DIPROPIONATE
     Route: 061
     Dates: start: 20211006
  15. LOXOPROFEN SODIUM [Concomitant]
     Active Substance: LOXOPROFEN SODIUM
     Dates: start: 20211106
  16. DESLORATADINE [Concomitant]
     Active Substance: DESLORATADINE
     Dates: start: 20220324
  17. PETROLATUM [Concomitant]
     Active Substance: PETROLATUM
     Dates: start: 20220627
  18. AZUNOL [Concomitant]
     Dates: start: 20220705
  19. MIROGABALIN BESYLATE [Concomitant]
     Active Substance: MIROGABALIN BESYLATE
     Dates: start: 20220729
  20. AMBROXOL [Concomitant]
     Active Substance: AMBROXOL
     Dates: start: 20220825
  21. WHITE PETROLATUM [Concomitant]
     Active Substance: PETROLATUM
     Dates: start: 20220822
  22. NEUROTROPIN TABLETS [Concomitant]
     Dates: start: 20221003
  23. TRANILAST [Concomitant]
     Active Substance: TRANILAST
     Dates: start: 20221031
  24. SENNOSIDES [Concomitant]
     Active Substance: SENNOSIDES
     Dates: start: 20221116

REACTIONS (1)
  - Cholangitis [Recovering/Resolving]

NARRATIVE: CASE EVENT DATE: 20221228
